FAERS Safety Report 7080992-5 (Version None)
Quarter: 2010Q4

REPORT INFORMATION
  Report Type: 
  Country: None (occurrence: None)
  Receive Date: 20101103
  Receipt Date: 20101025
  Transmission Date: 20110411
  Serious: Yes (Death)
  Sender: FDA-Public Use
  Company Number: US-CELGENEUS-163-20785-10100892

PATIENT
  Sex: Female

DRUGS (3)
  1. THALOMID [Suspect]
     Indication: MULTIPLE MYELOMA
     Dosage: 150MG-200MG
     Route: 048
     Dates: start: 20070801
  2. THALOMID [Suspect]
     Route: 048
     Dates: start: 20081001
  3. THALOMID [Suspect]
     Route: 048
     Dates: start: 20081201

REACTIONS (1)
  - THYROID CANCER METASTATIC [None]
